FAERS Safety Report 4902025-6 (Version None)
Quarter: 2006Q1

REPORT INFORMATION
  Report Type: 
  Country: None (occurrence: None)
  Receive Date: 20060201
  Receipt Date: 20060201
  Transmission Date: 20060701
  Serious: Yes (Other)
  Sender: FDA-Public Use
  Company Number: None

PATIENT
  Age: 9 Day
  Sex: Female
  Weight: 2 kg

DRUGS (6)
  1. BETADINE [Suspect]
     Indication: PREOPERATIVE CARE
     Dosage: TOPICAL
     Route: 061
     Dates: start: 20050912
  2. GENTAMICIN [Concomitant]
  3. AMPICILLIN SODIUM [Concomitant]
  4. HEPARIN LOCK-FLUSH [Concomitant]
  5. INTRALIPID 10% [Concomitant]
  6. TPN [Concomitant]

REACTIONS (1)
  - THYROID DISORDER [None]
